FAERS Safety Report 6286348-7 (Version None)
Quarter: 2009Q3

REPORT INFORMATION
  Report Type: 
  Country: None (occurrence: None)
  Receive Date: 20090728
  Receipt Date: 20090717
  Transmission Date: 20100115
  Serious: Yes (Hospitalization)
  Sender: FDA-Public Use
  Company Number: ES-PFIZER INC-2009237417

PATIENT
  Age: 72 Year

DRUGS (2)
  1. ALDACTONE [Suspect]
     Dosage: 25 MG, 1X/DAY
     Route: 048
     Dates: start: 20080101, end: 20081211
  2. OPENVAS [Interacting]
     Dosage: 40 MG, 1X/DAY
     Route: 048
     Dates: start: 20080101, end: 20081211

REACTIONS (2)
  - DRUG INTERACTION [None]
  - RENAL FAILURE ACUTE [None]
